FAERS Safety Report 18412901 (Version 3)
Quarter: 2021Q1

REPORT INFORMATION
  Report Type: Spontaneous
  Country: US (occurrence: US)
  Receive Date: 20201021
  Receipt Date: 20210206
  Transmission Date: 20210419
  Serious: Yes (Other)
  Sender: FDA-Public Use
  Company Number: US-TEVA-2020-US-1840680

PATIENT
  Age: 34 Year
  Sex: Male

DRUGS (42)
  1. HYDROCODONE AND ACETAMINOPHEN ACTAVIS [Suspect]
     Active Substance: ACETAMINOPHEN\HYDROCODONE
     Indication: PAIN
     Dosage: DOSE: 10/325 MG
     Route: 065
     Dates: start: 20141021, end: 20161020
  2. BUTRANS [Suspect]
     Active Substance: BUPRENORPHINE
     Route: 065
  3. ALLOPURINOL. [Concomitant]
     Active Substance: ALLOPURINOL
     Dosage: 300 MILLIGRAM DAILY;
  4. TESTOSTERONE CYPIONATE. [Concomitant]
     Active Substance: TESTOSTERONE CYPIONATE
     Dosage: 200 MG/ML INTRAMUSCULAR OIL, 1 CC IM EVERY WEEK
  5. DILAUDID [Suspect]
     Active Substance: HYDROMORPHONE HYDROCHLORIDE
     Route: 065
  6. OXYCODONE HYDROCHLORIDE AMNEAL PHARMACEUTICALS [Suspect]
     Active Substance: OXYCODONE HYDROCHLORIDE
     Indication: PAIN
     Dosage: FORM OF ADMIN: EXTENDED RELEASE TABLETS
     Route: 065
     Dates: start: 20190108, end: 20191004
  7. OXYCODONE HYDROCHLORIDE KVK?TECH, INC [Suspect]
     Active Substance: OXYCODONE HYDROCHLORIDE
     Indication: PAIN
     Route: 065
     Dates: start: 20190309, end: 20190508
  8. METFORMIN [Concomitant]
     Active Substance: METFORMIN HYDROCHLORIDE
     Dosage: 1000 MILLIGRAM DAILY;
  9. OXY IR [Suspect]
     Active Substance: OXYCODONE HYDROCHLORIDE
     Dosage: FORM OF ADMIN: IMMEDIATE?RELEASE TABLET
     Route: 065
  10. HYDROCODONE AND ACETAMINOPHEN MALLINCKRODT [Suspect]
     Active Substance: ACETAMINOPHEN\HYDROCODONE
     Indication: PAIN
     Dosage: 10/325 MG
     Route: 065
     Dates: start: 20181023, end: 20181029
  11. OXYCODONE HYDROCHLORIDE ZYDUS PHARMACEUTICALS [Suspect]
     Active Substance: OXYCODONE HYDROCHLORIDE
     Indication: PAIN
     Route: 065
     Dates: start: 20190408, end: 20190408
  12. OMEPRAZOLE. [Concomitant]
     Active Substance: OMEPRAZOLE
     Dosage: 40 MILLIGRAM DAILY;
  13. BENAZEPRIL [Concomitant]
     Active Substance: BENAZEPRIL HYDROCHLORIDE
     Dosage: 20 MILLIGRAM DAILY;
  14. LOSARTAN. [Concomitant]
     Active Substance: LOSARTAN
     Dosage: DAILY
     Route: 065
  15. ASPIRIN. [Concomitant]
     Active Substance: ASPIRIN
     Dosage: 81 MILLIGRAM DAILY; 81 MG DAILY
  16. NORCO [Suspect]
     Active Substance: ACETAMINOPHEN\HYDROCODONE BITARTRATE
     Route: 065
  17. FENTANYL MALLINCKRODT [Suspect]
     Active Substance: FENTANYL
     Indication: PAIN
     Dosage: DOSE: 25 MCG/HR (PATCH) (ONLY 1WL THIS MANUFACTURE X 10 PATCHES)
     Route: 065
     Dates: start: 20181023, end: 20181023
  18. LIPITOR [Concomitant]
     Active Substance: ATORVASTATIN CALCIUM
     Dosage: 40 MILLIGRAM DAILY;
  19. NASONEX (MOMETASONE) [Concomitant]
     Dosage: 50 MEG/ACTUATION SPRAY, 2 SPRAYS EACH NOSTRIL DAILY
  20. OXYCONTIN [Suspect]
     Active Substance: OXYCODONE HYDROCHLORIDE
     Indication: PAIN
     Dosage: (ONLY 1 RXX 60 TABS)
     Route: 065
     Dates: start: 20041008, end: 20041008
  21. RYZOLT [Suspect]
     Active Substance: TRAMADOL HYDROCHLORIDE
     Route: 065
  22. HYDROCODONE [Suspect]
     Active Substance: HYDROCODONE
     Route: 065
  23. LORTAB [Suspect]
     Active Substance: ACETAMINOPHEN\HYDROCODONE BITARTRATE
     Route: 065
  24. FENOFIBRATE (TRICOR) [Concomitant]
     Dosage: 160 MILLIGRAM DAILY;
  25. CLONIDINE HCI [Concomitant]
     Dosage: .2 MILLIGRAM DAILY;
  26. LYRICA [Concomitant]
     Active Substance: PREGABALIN
     Dosage: 900 MILLIGRAM DAILY;
  27. COLCHICINE. [Concomitant]
     Active Substance: COLCHICINE
     Indication: GOUT
     Dosage: 0.6 MG TWICE DAILY, PRN GOUT
  28. ZYRTEC [Concomitant]
     Active Substance: CETIRIZINE HYDROCHLORIDE
     Dosage: ZYRTEC (CETIRIZINE) 10 MG TABLET, 1 TAB BY MOUTH DAILY, PRN
     Route: 048
  29. MORPHINE [Suspect]
     Active Substance: MORPHINE
     Dosage: FORM OF ADMIN: EXTENDED RELEASE TABLET
     Route: 065
  30. OXYCONTIN [Suspect]
     Active Substance: OXYCODONE HYDROCHLORIDE
     Route: 065
     Dates: start: 20140221, end: 20160324
  31. MS CONTIN [Suspect]
     Active Substance: MORPHINE SULFATE
     Route: 065
  32. OXYCODONE KVK?TECH, INC [Suspect]
     Active Substance: OXYCODONE HYDROCHLORIDE
     Indication: PAIN
     Route: 065
     Dates: start: 20161114, end: 20190108
  33. FENTANYL MYLAN [Suspect]
     Active Substance: FENTANYL
     Indication: PAIN
     Dosage: DOSE: 25 MCG/HR (PATCH) (ONLY 1WL THIS MANUFACTURE X 10 PATCHES)
     Route: 065
     Dates: start: 20181029, end: 20181029
  34. PROAIR HFA [Concomitant]
     Active Substance: ALBUTEROL SULFATE
     Dosage: 90 MEG/ACTUATION AEROSOL INHALER, 2 PUFFS TWICE DAILY AS NEEDED
  35. HYDROMORPHONE [Suspect]
     Active Substance: HYDROMORPHONE
     Dosage: FORM OF ADMIN: IMMEDIATE?RELEASE TABLETS
     Route: 065
  36. OXYCODONE AND ACETAMINOPHEN [Suspect]
     Active Substance: ACETAMINOPHEN\OXYCODONE HYDROCHLORIDE
     Indication: PAIN
     Dosage: DOSE: 10?325 MG
     Route: 065
     Dates: start: 20191106, end: 20191106
  37. TRAMADOL. [Suspect]
     Active Substance: TRAMADOL
     Route: 065
  38. BUPRENORPHINE. [Suspect]
     Active Substance: BUPRENORPHINE
     Route: 062
  39. HYDROCODONE BITARTRATE AND ACETAMINOPHEN [Suspect]
     Active Substance: ACETAMINOPHEN\HYDROCODONE BITARTRATE
     Indication: PAIN
     Dosage: DOSE: 7.5/500 MG
     Route: 065
     Dates: start: 20030917, end: 20031001
  40. HYDROCODONE BITARTRATE AND ACETAMINOPHEN [Suspect]
     Active Substance: ACETAMINOPHEN\HYDROCODONE BITARTRATE
     Indication: PAIN
     Dosage: DOSE: 10/325 MG
     Route: 065
     Dates: start: 20031028, end: 20040123
  41. OXYCODONE HYDROCHLORIDE SPECGX LLC [Suspect]
     Active Substance: OXYCODONE HYDROCHLORIDE
     Indication: PAIN
     Route: 065
     Dates: start: 20191125, end: 20200505
  42. NORVASC [Concomitant]
     Active Substance: AMLODIPINE BESYLATE
     Dosage: 160 MILLIGRAM DAILY;

REACTIONS (10)
  - Disturbance in attention [Not Recovered/Not Resolved]
  - Economic problem [Not Recovered/Not Resolved]
  - Anxiety [Not Recovered/Not Resolved]
  - Drug dependence [Not Recovered/Not Resolved]
  - Stress [Not Recovered/Not Resolved]
  - Personal relationship issue [Not Recovered/Not Resolved]
  - Decreased activity [Unknown]
  - Weight increased [Not Recovered/Not Resolved]
  - Substance use disorder [Not Recovered/Not Resolved]
  - Pain [Not Recovered/Not Resolved]

NARRATIVE: CASE EVENT DATE: 1995
